FAERS Safety Report 12664220 (Version 4)
Quarter: 2016Q4

REPORT INFORMATION
  Report Type: Report from Study
  Country: BR (occurrence: BR)
  Receive Date: 20160818
  Receipt Date: 20161220
  Transmission Date: 20170207
  Serious: Yes (Hospitalization, Other)
  Sender: FDA-Public Use
  Company Number: BR-VIIV HEALTHCARE LIMITED-BR2016GSK117821

PATIENT
  Age: 52 Year
  Sex: Female

DRUGS (2)
  1. DOLUTEGRAVIR [Suspect]
     Active Substance: DOLUTEGRAVIR
     Indication: HIV INFECTION
     Dosage: 50 MG, QD
     Route: 048
     Dates: start: 20120301
  2. DECADRON [Concomitant]
     Active Substance: DEXAMETHASONE

REACTIONS (10)
  - Tremor [Unknown]
  - Paraesthesia [Unknown]
  - Vertigo [Unknown]
  - Fall [Unknown]
  - Adrenal insufficiency [Unknown]
  - Asthenia [Unknown]
  - Muscular weakness [Unknown]
  - Tachycardia [Recovered/Resolved]
  - Balance disorder [Unknown]
  - Palpitations [Unknown]

NARRATIVE: CASE EVENT DATE: 20160728
